FAERS Safety Report 4407365-5 (Version None)
Quarter: 2004Q3

REPORT INFORMATION
  Report Type: 
  Country: None (occurrence: None)
  Receive Date: 20040721
  Receipt Date: 20040707
  Transmission Date: 20050211
  Serious: Yes (Hospitalization)
  Sender: FDA-Public Use
  Company Number: USA040567828

PATIENT
  Age: 80 Year
  Sex: Female

DRUGS (8)
  1. FORTEO [Suspect]
     Indication: OSTEOPOROSIS
     Dosage: 20 UG DAY
     Dates: start: 20040505
  2. CODEINE [Concomitant]
  3. TYLENOL [Concomitant]
  4. AMBIEN [Concomitant]
  5. HYDROCODONE [Concomitant]
  6. ASPIRIN [Concomitant]
  7. COZAAR [Concomitant]
  8. METOPROLOL [Concomitant]

REACTIONS (8)
  - FALL [None]
  - FEAR [None]
  - FEELING ABNORMAL [None]
  - INSOMNIA [None]
  - NAUSEA [None]
  - NERVOUS SYSTEM DISORDER [None]
  - PHARMACEUTICAL PRODUCT COMPLAINT [None]
  - WALKING AID USER [None]
